FAERS Safety Report 14822757 (Version 6)
Quarter: 2022Q1

REPORT INFORMATION
  Report Type: Spontaneous
  Country: US (occurrence: None)
  Receive Date: 20180427
  Receipt Date: 20220211
  Transmission Date: 20220423
  Serious: Yes (Other)
  Sender: FDA-Public Use
  Company Number: 2018SE50824

PATIENT
  Age: 16942 Day
  Sex: Female
  Weight: 84.4 kg

DRUGS (50)
  1. NEXIUM [Suspect]
     Active Substance: ESOMEPRAZOLE MAGNESIUM
     Route: 048
     Dates: start: 2000, end: 2016
  2. NEXIUM 24HR [Suspect]
     Active Substance: ESOMEPRAZOLE MAGNESIUM
     Route: 048
     Dates: start: 2000, end: 2016
  3. VIMOVO [Suspect]
     Active Substance: ESOMEPRAZOLE MAGNESIUM\NAPROXEN
     Route: 048
     Dates: start: 2000, end: 2016
  4. PRILOSEC [Suspect]
     Active Substance: OMEPRAZOLE MAGNESIUM
     Indication: Gastrooesophageal reflux disease
     Route: 048
     Dates: start: 2000, end: 2016
  5. PRILOSEC [Suspect]
     Active Substance: OMEPRAZOLE MAGNESIUM
     Indication: Gastrooesophageal reflux disease
     Route: 048
     Dates: start: 200001, end: 201901
  6. PRILOSEC [Suspect]
     Active Substance: OMEPRAZOLE MAGNESIUM
     Indication: Gastrooesophageal reflux disease
     Route: 048
     Dates: start: 20000101, end: 20081231
  7. PRILOSEC [Suspect]
     Active Substance: OMEPRAZOLE MAGNESIUM
     Indication: Gastrooesophageal reflux disease
     Route: 048
     Dates: start: 20000101, end: 20081231
  8. PRILOSEC [Suspect]
     Active Substance: OMEPRAZOLE MAGNESIUM
     Indication: Gastrooesophageal reflux disease
     Route: 048
     Dates: start: 200001, end: 200812
  9. PRILOSEC OTC [Suspect]
     Active Substance: OMEPRAZOLE MAGNESIUM
     Indication: Gastrooesophageal reflux disease
     Route: 048
     Dates: start: 2000, end: 2016
  10. PRILOSEC OTC [Suspect]
     Active Substance: OMEPRAZOLE MAGNESIUM
     Indication: Gastrooesophageal reflux disease
     Route: 048
     Dates: start: 200001, end: 200812
  11. PRILOSEC OTC [Suspect]
     Active Substance: OMEPRAZOLE MAGNESIUM
     Indication: Gastrooesophageal reflux disease
     Route: 048
     Dates: start: 20030720, end: 20081231
  12. DEXILANT [Suspect]
     Active Substance: DEXLANSOPRAZOLE
     Route: 065
     Dates: start: 2000, end: 2016
  13. PREVACID [Suspect]
     Active Substance: LANSOPRAZOLE
     Indication: Gastrooesophageal reflux disease
     Route: 065
     Dates: start: 2000, end: 2016
  14. PREVACID [Suspect]
     Active Substance: LANSOPRAZOLE
     Indication: Gastrooesophageal reflux disease
     Route: 065
     Dates: start: 200001, end: 201901
  15. PREVACID [Suspect]
     Active Substance: LANSOPRAZOLE
     Indication: Gastrooesophageal reflux disease
     Route: 065
     Dates: start: 20000101, end: 20121231
  16. PREVACID [Suspect]
     Active Substance: LANSOPRAZOLE
     Indication: Gastrooesophageal reflux disease
     Route: 065
     Dates: start: 20000101, end: 20121231
  17. PREVACID [Suspect]
     Active Substance: LANSOPRAZOLE
     Indication: Gastrooesophageal reflux disease
     Route: 065
     Dates: start: 200001, end: 201212
  18. PREVACID 24 HR [Suspect]
     Active Substance: LANSOPRAZOLE
     Route: 065
     Dates: start: 2000, end: 2016
  19. PROTONIX [Suspect]
     Active Substance: PANTOPRAZOLE SODIUM
     Indication: Gastrooesophageal reflux disease
     Route: 065
     Dates: start: 2000, end: 2016
  20. PROTONIX [Suspect]
     Active Substance: PANTOPRAZOLE SODIUM
     Indication: Gastrooesophageal reflux disease
     Route: 065
     Dates: start: 200001, end: 201901
  21. PROTONIX [Suspect]
     Active Substance: PANTOPRAZOLE SODIUM
     Indication: Gastrooesophageal reflux disease
     Route: 065
     Dates: start: 20180601, end: 20190101
  22. PROTONIX [Suspect]
     Active Substance: PANTOPRAZOLE SODIUM
     Indication: Gastrooesophageal reflux disease
     Route: 065
     Dates: start: 201806
  23. PROTONIX [Suspect]
     Active Substance: PANTOPRAZOLE SODIUM
     Indication: Gastrooesophageal reflux disease
     Dosage: GENERIC
     Route: 065
     Dates: start: 20170901, end: 20171001
  24. PROTONIX [Suspect]
     Active Substance: PANTOPRAZOLE SODIUM
     Indication: Gastrooesophageal reflux disease
     Dosage: GENERIC
     Route: 065
     Dates: start: 201709, end: 201710
  25. ACIPHEX [Suspect]
     Active Substance: RABEPRAZOLE SODIUM
     Route: 065
     Dates: start: 2000, end: 2016
  26. APRESOLINE HYDROCHLORIDE [Concomitant]
     Active Substance: HYDRALAZINE HYDROCHLORIDE
  27. LORCET PLUS [Concomitant]
     Active Substance: ACETAMINOPHEN\HYDROCODONE BITARTRATE
  28. ZUPLENZ [Concomitant]
     Active Substance: ONDANSETRON
  29. TYLENOL [Concomitant]
     Active Substance: ACETAMINOPHEN
  30. ALEVE [Concomitant]
     Active Substance: NAPROXEN SODIUM
  31. CELEBREX [Concomitant]
     Active Substance: CELECOXIB
  32. AMLODIPINE [Concomitant]
     Active Substance: AMLODIPINE BESYLATE
  33. AMOXICILLIN [Concomitant]
     Active Substance: AMOXICILLIN
  34. FOLIC ACID\IRON\MINERALS\VITAMINS [Concomitant]
     Active Substance: FOLIC ACID\IRON\MINERALS\VITAMINS
  35. HYDROCHLOROTHIAZIDE [Concomitant]
     Active Substance: HYDROCHLOROTHIAZIDE
  36. HYDROXYZINE PAMOATE [Concomitant]
     Active Substance: HYDROXYZINE PAMOATE
  37. LISINOPRIL [Concomitant]
     Active Substance: LISINOPRIL
  38. NORCO [Concomitant]
     Active Substance: ACETAMINOPHEN\HYDROCODONE BITARTRATE
  39. OXYBUTYNIN CHLORIDE [Concomitant]
     Active Substance: OXYBUTYNIN CHLORIDE
  40. PROCHLORPERAZINE [Concomitant]
     Active Substance: PROCHLORPERAZINE
  41. ZANTAC [Concomitant]
     Active Substance: RANITIDINE HYDROCHLORIDE
  42. COREG [Concomitant]
     Active Substance: CARVEDILOL
  43. VITAMIN D [Concomitant]
     Active Substance: VITAMIN D NOS
  44. RANITIDINE [Concomitant]
     Active Substance: RANITIDINE
     Route: 065
     Dates: start: 201810
  45. ATENOLOL [Concomitant]
     Active Substance: ATENOLOL
  46. CLONIDINE [Concomitant]
     Active Substance: CLONIDINE
  47. AMITRIPTYLINE [Concomitant]
     Active Substance: AMITRIPTYLINE
  48. GABAPENTIN [Concomitant]
     Active Substance: GABAPENTIN
  49. ONDANSETRON [Concomitant]
     Active Substance: ONDANSETRON
  50. OXYBUTYNIN [Concomitant]
     Active Substance: OXYBUTYNIN

REACTIONS (9)
  - Chronic kidney disease [Not Recovered/Not Resolved]
  - Renal failure [Unknown]
  - Acute kidney injury [Unknown]
  - End stage renal disease [Unknown]
  - Renal injury [Unknown]
  - Chronic kidney disease-mineral and bone disorder [Unknown]
  - Tubulointerstitial nephritis [Unknown]
  - Dyspepsia [Unknown]
  - Gastrooesophageal reflux disease [Not Recovered/Not Resolved]

NARRATIVE: CASE EVENT DATE: 20101221
